FAERS Safety Report 24329345 (Version 1)
Quarter: 2024Q3

REPORT INFORMATION
  Report Type: Spontaneous
  Country: US (occurrence: US)
  Receive Date: 20240917
  Receipt Date: 20240917
  Transmission Date: 20241017
  Serious: Yes (Other)
  Sender: APELLIS PHARMACEUTICALS
  Company Number: APELLIS-2024-APL-0000984

PATIENT

DRUGS (1)
  1. SYFOVRE [Suspect]
     Active Substance: PEGCETACOPLAN
     Indication: Product used for unknown indication
     Dates: start: 20240906

REACTIONS (3)
  - Non-infectious endophthalmitis [Recovering/Resolving]
  - Ocular discomfort [Recovering/Resolving]
  - Anterior chamber cell [Recovering/Resolving]
